FAERS Safety Report 5907084-X (Version None)
Quarter: 2008Q4

REPORT INFORMATION
  Report Type: 
  Country: None (occurrence: None)
  Receive Date: 20081003
  Receipt Date: 20080923
  Transmission Date: 20090506
  Serious: Yes (Other)
  Sender: FDA-Public Use
  Company Number: CA-JNJFOC-20080702637

PATIENT
  Age: 38 Year
  Sex: Female
  Weight: 54.43 kg

DRUGS (6)
  1. REMICADE [Suspect]
     Route: 042
  2. REMICADE [Suspect]
     Dosage: SECOND LOADING DOSE
     Route: 042
  3. REMICADE [Suspect]
     Indication: CROHN'S DISEASE
     Route: 042
  4. TYLENOL W/ CODEINE NO. 3 [Concomitant]
  5. METHOTREXATE [Concomitant]
  6. AMITRIPTYLINE HCL [Concomitant]
     Indication: DEPRESSION

REACTIONS (3)
  - ABORTION SPONTANEOUS [None]
  - DRUG EXPOSURE DURING PREGNANCY [None]
  - DRUG INEFFECTIVE [None]
